FAERS Safety Report 7058292-9 (Version None)
Quarter: 2010Q4

REPORT INFORMATION
  Report Type: 
  Country: None (occurrence: None)
  Receive Date: 20101022
  Receipt Date: 20101011
  Transmission Date: 20110411
  Serious: Yes (Life-Threatening, Hospitalization)
  Sender: FDA-Public Use
  Company Number: BG-ELI_LILLY_AND_COMPANY-BG201010003370

PATIENT
  Sex: Male
  Weight: 97 kg

DRUGS (2)
  1. ZYPADHERA [Suspect]
     Indication: SCHIZOPHRENIA, PARANOID TYPE
     Dosage: 405 MG, MONTHLY (1/M)
     Route: 030
     Dates: start: 20101008
  2. DIAZEPAM [Concomitant]
     Indication: SCHIZOPHRENIA
     Dosage: 5 MG/KG, BEFORE 12H
     Dates: start: 20101007

REACTIONS (15)
  - ALTERED STATE OF CONSCIOUSNESS [None]
  - APHASIA [None]
  - APTYALISM [None]
  - ATAXIA [None]
  - COORDINATION ABNORMAL [None]
  - DECREASED ACTIVITY [None]
  - DISORIENTATION [None]
  - DIZZINESS [None]
  - HALLUCINATION [None]
  - ILLUSION [None]
  - INCOHERENT [None]
  - PSYCHOMOTOR HYPERACTIVITY [None]
  - SEDATION [None]
  - SOMNOLENCE [None]
  - VISION BLURRED [None]
